FAERS Safety Report 6403136-9 (Version None)
Quarter: 2009Q4

REPORT INFORMATION
  Report Type: 
  Country: None (occurrence: None)
  Receive Date: 20091016
  Receipt Date: 20091007
  Transmission Date: 20100525
  Serious: Yes (Hospitalization)
  Sender: FDA-Public Use
  Company Number: US-ASTRAZENECA-2009SE19165

PATIENT
  Age: 68 Year
  Sex: Female

DRUGS (4)
  1. SEROQUEL XR [Suspect]
     Route: 048
  2. SYMBICORT [Suspect]
     Dosage: 160/4.5
     Route: 055
  3. HYPERTHYROID MEDICATION [Concomitant]
  4. PARKINSONS DISEASE MEDICATION [Concomitant]

REACTIONS (1)
  - HALLUCINATION [None]
